FAERS Safety Report 9380557 (Version 1)
Quarter: 2013Q3

REPORT INFORMATION
  Report Type: Spontaneous
  Country: US (occurrence: US)
  Receive Date: 20130702
  Receipt Date: 20130702
  Transmission Date: 20140515
  Serious: No
  Sender: FDA-Public Use
  Company Number: US-BAYER-2013-079437

PATIENT
  Age: 67 Year
  Sex: Male

DRUGS (1)
  1. XOFIGO [Suspect]
     Dosage: 142.4 MBQ, MICROCURIES
     Dates: start: 20130621, end: 20130621

REACTIONS (2)
  - Urticaria [None]
  - Lip oedema [None]
